FAERS Safety Report 23572407 (Version 3)
Quarter: 2024Q2

REPORT INFORMATION
  Report Type: Spontaneous
  Country: US (occurrence: US)
  Receive Date: 20240227
  Receipt Date: 20240409
  Transmission Date: 20240716
  Serious: No
  Sender: FDA-Public Use
  Company Number: US-MYLANLABS-2024M1016996

PATIENT
  Sex: Male

DRUGS (1)
  1. TYRVAYA [Suspect]
     Active Substance: VARENICLINE TARTRATE
     Indication: Dry eye
     Dosage: 0.03 MILLIGRAM, BID
     Route: 065
     Dates: start: 202402

REACTIONS (5)
  - Cold-stimulus headache [Unknown]
  - Nasal discomfort [Unknown]
  - Sneezing [Unknown]
  - Cough [Unknown]
  - Throat irritation [Unknown]
